FAERS Safety Report 20721102 (Version 1)
Quarter: 2022Q2

REPORT INFORMATION
  Report Type: Spontaneous
  Country: US (occurrence: None)
  Receive Date: 20220415
  Receipt Date: 20220415
  Transmission Date: 20220721
  Serious: Yes (unspecified)
  Sender: FDA-Public Use
  Company Number: None

PATIENT
  Age: 63 Year
  Sex: Male
  Weight: 126.9 kg

DRUGS (1)
  1. KRYSTEXXA [Suspect]
     Active Substance: PEGLOTICASE
     Indication: Gout
     Dosage: OTHER FREQUENCY : EVERY 2 WEEKS;?
     Route: 041
     Dates: start: 20210513, end: 20220415

REACTIONS (5)
  - Palpitations [None]
  - Infusion related reaction [None]
  - Therapy cessation [None]
  - Flushing [None]
  - Feeling abnormal [None]

NARRATIVE: CASE EVENT DATE: 20220415
